FAERS Safety Report 10628758 (Version 2)
Quarter: 2014Q4

REPORT INFORMATION
  Report Type: Spontaneous
  Country: US (occurrence: US)
  Receive Date: 20141205
  Receipt Date: 20141205
  Transmission Date: 20150529
  Serious: No
  Sender: FDA-Public Use
  Company Number: US-BRISTOL-MYERS SQUIBB COMPANY-21277702

PATIENT
  Age: 67 Year
  Sex: Male
  Weight: 73.47 kg

DRUGS (7)
  1. COUMADIN [Suspect]
     Active Substance: WARFARIN SODIUM
     Indication: ATRIAL FIBRILLATION
  2. METOPROLOL [Concomitant]
     Active Substance: METOPROLOL
  3. NIACIN. [Concomitant]
     Active Substance: NIACIN
     Indication: BLOOD CHOLESTEROL
  4. MULTIVITAMINS [Concomitant]
     Active Substance: VITAMINS
  5. FISH OIL [Concomitant]
     Active Substance: FISH OIL
  6. ASPIRIN. [Concomitant]
     Active Substance: ASPIRIN
  7. QUESTRAN [Concomitant]
     Active Substance: CHOLESTYRAMINE
     Indication: BLOOD CHOLESTEROL

REACTIONS (1)
  - International normalised ratio fluctuation [Unknown]
